FAERS Safety Report 10613820 (Version 3)
Quarter: 2015Q1

REPORT INFORMATION
  Report Type: Spontaneous
  Country: US (occurrence: US)
  Receive Date: 20141128
  Receipt Date: 20150211
  Transmission Date: 20150720
  Serious: No
  Sender: FDA-Public Use
  Company Number: US-GLAXOSMITHKLINE-A1061044A

PATIENT

DRUGS (2)
  1. LAMICTAL [Suspect]
     Active Substance: LAMOTRIGINE
     Indication: PRODUCT USED FOR UNKNOWN INDICATION
     Dosage: 200 MG ON 15 NOVEMBER 2006, 100 MG ON 27 JANUARY 2009
     Route: 048
     Dates: start: 20061115
  2. WELLBUTRIN SR [Suspect]
     Active Substance: BUPROPION HYDROCHLORIDE
     Indication: DEPRESSION
     Dosage: 150 MG TABLET UNKNOWN DOSING
     Route: 048
     Dates: start: 20110223

REACTIONS (2)
  - Drug administration error [Unknown]
  - Seasonal allergy [Unknown]
